FAERS Safety Report 9375001 (Version 1)
Quarter: 2013Q2

REPORT INFORMATION
  Report Type: Spontaneous
  Country: CH (occurrence: CH)
  Receive Date: 20130628
  Receipt Date: 20130628
  Transmission Date: 20140414
  Serious: Yes (Other)
  Sender: FDA-Public Use
  Company Number: PHHY2013CH065871

PATIENT
  Sex: Male
  Weight: 77 kg

DRUGS (5)
  1. SANDIMMUN [Suspect]
     Dosage: 75MG,BID
     Route: 048
     Dates: start: 2004
  2. ZANIDIP [Concomitant]
     Dosage: 20 MG, QD
     Route: 048
  3. APROVEL [Concomitant]
     Dosage: 150 MG QD
     Route: 048
  4. DE-URSIL [Concomitant]
     Dosage: 150MG TID
     Route: 048
  5. EUTHYROX [Concomitant]
     Dosage: 75 MG, QD
     Route: 048

REACTIONS (2)
  - Hypertonia [Not Recovered/Not Resolved]
  - Renal failure chronic [Not Recovered/Not Resolved]
